FAERS Safety Report 7928019-4 (Version None)
Quarter: 2011Q4

REPORT INFORMATION
  Report Type: 
  Country: None (occurrence: None)
  Receive Date: 20111118
  Receipt Date: 20111114
  Transmission Date: 20120403
  Serious: Yes (Other)
  Sender: FDA-Public Use
  Company Number: BR-ABBOTT-11P-020-0873992-00

PATIENT
  Age: 12 Year
  Sex: Male

DRUGS (9)
  1. METHYSERGIDE [Suspect]
     Indication: CLUSTER HEADACHE
  2. SUMATRIPTAN [Concomitant]
     Indication: PRODUCT USED FOR UNKNOWN INDICATION
  3. PREDNISOLONE [Suspect]
     Indication: CLUSTER HEADACHE
  4. LITHIUM CARBONATE [Suspect]
     Indication: PRODUCT USED FOR UNKNOWN INDICATION
  5. ANTIBIOTICS [Concomitant]
     Indication: PRODUCT USED FOR UNKNOWN INDICATION
  6. OXYGEN [Concomitant]
     Indication: PRODUCT USED FOR UNKNOWN INDICATION
  7. VALPROATE SODIUM [Suspect]
     Indication: CLUSTER HEADACHE
  8. VERAPAMIL [Suspect]
     Indication: CLUSTER HEADACHE
  9. INDOMETHACIN [Suspect]
     Indication: PAIN

REACTIONS (5)
  - ASTHENIA [None]
  - TOXOPLASMOSIS [None]
  - PYREXIA [None]
  - DYSPEPSIA [None]
  - THERAPEUTIC RESPONSE DECREASED [None]
